FAERS Safety Report 7224980-4 (Version None)
Quarter: 2011Q1

REPORT INFORMATION
  Report Type: 
  Country: None (occurrence: None)
  Receive Date: 20110113
  Receipt Date: 20101220
  Transmission Date: 20110831
  Serious: Yes (Other)
  Sender: FDA-Public Use
  Company Number: EG-BAYER-2010-005603

PATIENT
  Sex: Male
  Weight: 95 kg

DRUGS (3)
  1. UNCODEABLE ^UNCLASSIFIABLE^ [Concomitant]
     Indication: HYPERTENSION
     Dosage: UNK
     Dates: start: 20050101
  2. ANTIHEMOPHILIC FACTOR (RECOMBINANT), SUCROSE FORMULATED [Suspect]
     Indication: HAEMOPHILIA
     Dosage: 572 IU, UNK
     Route: 042
     Dates: end: 20101215
  3. KOATE [Concomitant]
     Indication: HAEMOPHILIA
     Dosage: 500 IU, UNK
     Dates: start: 20090101, end: 20101101

REACTIONS (7)
  - DYSPNOEA [None]
  - FLUSHING [None]
  - RASH [None]
  - ERYTHEMA [None]
  - DRUG HYPERSENSITIVITY [None]
  - BLOOD PRESSURE INCREASED [None]
  - HYPERTENSION [None]
